FAERS Safety Report 6182010-X (Version None)
Quarter: 2009Q2

REPORT INFORMATION
  Report Type: 
  Country: None (occurrence: None)
  Receive Date: 20090505
  Receipt Date: 20090423
  Transmission Date: 20091009
  Serious: Yes (Life-Threatening, Hospitalization)
  Sender: FDA-Public Use
  Company Number: AE-2009-028

PATIENT
  Age: 82 Year
  Sex: Male
  Weight: 77 kg

DRUGS (10)
  1. METOPROLOL [Suspect]
     Indication: HYPERTENSION
     Dosage: 95MG, BID, ORAL
     Route: 048
  2. INSULIN HUMAN [Suspect]
     Indication: TYPE 2 DIABETES MELLITUS
     Dosage: 16 IU, QD, SUBCUTANEOUS
     Route: 058
  3. INSULIN HUMAN INJECTION (ACTRAPHANE (HM) [Suspect]
     Indication: TYPE 2 DIABETES MELLITUS
     Dosage: 30-0-26 IU, SUBCUTANEOUS
     Route: 058
  4. LERCANIDIPINE [Concomitant]
  5. DOXAZOSIN MESYLATE [Concomitant]
  6. HYDROCHLOROTHIAZIDE [Concomitant]
  7. CANDESARTAN CILEXETIL [Concomitant]
  8. MONOXIDINE [Concomitant]
  9. SIMVASTATIN [Concomitant]
  10. INSULIN HUMAN INJECTION (ACTRAPHANE HM) [Suspect]
     Indication: DIABETES MELLITUS
     Dosage: ^ 30-0-26^IU SUBCUTANEOUS
     Route: 058

REACTIONS (1)
  - SHOCK HYPOGLYCAEMIC [None]
